FAERS Safety Report 11886492 (Version 3)
Quarter: 2016Q1

REPORT INFORMATION
  Report Type: Spontaneous
  Country: DE (occurrence: DE)
  Receive Date: 20160104
  Receipt Date: 20160127
  Transmission Date: 20160526
  Serious: Yes (Hospitalization)
  Sender: FDA-Public Use
  Company Number: DE-CELGENE-DEU-2015124134

PATIENT
  Age: 43 Year
  Sex: Female
  Weight: 68 kg

DRUGS (2)
  1. OTEZLA [Suspect]
     Active Substance: APREMILAST
     Indication: PSORIATIC ARTHROPATHY
     Dosage: 60 MILLIGRAM
     Route: 048
     Dates: start: 20150415, end: 20151217
  2. ARCOXIA [Concomitant]
     Active Substance: ETORICOXIB
     Indication: PSORIATIC ARTHROPATHY
     Dosage: 15 MILLIGRAM
     Route: 065
     Dates: start: 20140805

REACTIONS (1)
  - Breast cancer [Unknown]

NARRATIVE: CASE EVENT DATE: 20151028
